FAERS Safety Report 5974749-3 (Version None)
Quarter: 2008Q4

REPORT INFORMATION
  Report Type: 
  Country: None (occurrence: None)
  Receive Date: 20081201
  Receipt Date: 20081125
  Transmission Date: 20090506
  Serious: Yes (Other)
  Sender: FDA-Public Use
  Company Number: FR-PFIZER INC-2008100364

PATIENT
  Sex: Female

DRUGS (3)
  1. RELPAX [Suspect]
     Dates: start: 20081125
  2. COTAREG [Concomitant]
     Dates: start: 20081125
  3. BASDENE [Concomitant]

REACTIONS (2)
  - HYPERTENSION [None]
  - HYPOAESTHESIA [None]
